FAERS Safety Report 4521652-1 (Version None)
Quarter: 2004Q4

REPORT INFORMATION
  Report Type: 
  Country: None (occurrence: None)
  Receive Date: 20041206
  Receipt Date: 20041126
  Transmission Date: 20050328
  Serious: Yes (Hospitalization, Other)
  Sender: FDA-Public Use
  Company Number: 200411019BVD

PATIENT
  Age: 36 Year
  Sex: Female
  Weight: 68 kg

DRUGS (2)
  1. CIPROFLOXACIN [Suspect]
     Indication: MASTITIS
     Dosage: INTRAVENOUS
     Route: 042
     Dates: start: 20040820, end: 20040823
  2. CIPROFLOXACIN [Suspect]
     Indication: MASTITIS
     Dosage: ORAL
     Route: 048
     Dates: start: 20040823, end: 20040829

REACTIONS (17)
  - AUTOIMMUNE DISORDER [None]
  - C-REACTIVE PROTEIN INCREASED [None]
  - CHEST PAIN [None]
  - EPISCLERITIS [None]
  - ERYTHEMA NODOSUM [None]
  - FEELING ABNORMAL [None]
  - GENERAL PHYSICAL HEALTH DETERIORATION [None]
  - HYPERPROLACTINAEMIA [None]
  - LARYNGEAL OEDEMA [None]
  - MICROCYTIC ANAEMIA [None]
  - MYOCARDITIS [None]
  - PYREXIA [None]
  - RAYNAUD'S PHENOMENON [None]
  - RED BLOOD CELL SEDIMENTATION RATE INCREASED [None]
  - STRESS SYMPTOMS [None]
  - THYROIDITIS [None]
  - VASCULITIS [None]
